FAERS Safety Report 12638132 (Version 2)
Quarter: 2017Q1

REPORT INFORMATION
  Report Type: Spontaneous
  Country: US (occurrence: US)
  Receive Date: 20160809
  Receipt Date: 20170209
  Transmission Date: 20170428
  Serious: No
  Sender: FDA-Public Use
  Company Number: US-SA-2016SA120751

PATIENT
  Age: 83 Year
  Sex: Female
  Weight: 75.29 kg

DRUGS (5)
  1. PRALUENT [Suspect]
     Active Substance: ALIROCUMAB
     Indication: TYPE V HYPERLIPIDAEMIA
     Dosage: DOSE:75MG
     Route: 058
     Dates: start: 20160525
  2. PRALUENT [Suspect]
     Active Substance: ALIROCUMAB
     Indication: TYPE V HYPERLIPIDAEMIA
     Dosage: DOSE:75MG
     Route: 058
     Dates: start: 20160525
  3. PRALUENT [Suspect]
     Active Substance: ALIROCUMAB
     Indication: TYPE V HYPERLIPIDAEMIA
     Route: 058
     Dates: start: 2016
  4. ALIROCUMAB PREFILLED PEN [Concomitant]
     Active Substance: ALIROCUMAB
     Dates: start: 20160525
  5. PRALUENT [Suspect]
     Active Substance: ALIROCUMAB
     Indication: TYPE V HYPERLIPIDAEMIA
     Route: 058

REACTIONS (8)
  - Rash pruritic [Unknown]
  - Muscle spasms [Unknown]
  - Upper respiratory tract infection [Recovering/Resolving]
  - Dyspnoea [Unknown]
  - Abdominal pain upper [Unknown]
  - Therapeutic response decreased [Unknown]
  - Lacrimation increased [Unknown]
  - Insomnia [Unknown]
